FAERS Safety Report 14529048 (Version 2)
Quarter: 2018Q3

REPORT INFORMATION
  Report Type: Spontaneous
  Country: US (occurrence: US)
  Receive Date: 20180214
  Receipt Date: 20180913
  Transmission Date: 20181010
  Serious: Yes (Other)
  Sender: FDA-Public Use
  Company Number: US-PFIZER INC-2018063435

PATIENT
  Age: 61 Year
  Sex: Female

DRUGS (1)
  1. IBRANCE [Suspect]
     Active Substance: PALBOCICLIB
     Indication: BREAST CANCER METASTATIC
     Dosage: 125 MG, CYCLIC (DAILY, 1 ? 21/28)
     Route: 048
     Dates: start: 20180201

REACTIONS (2)
  - Neuropathy peripheral [Unknown]
  - Pruritus [Unknown]

NARRATIVE: CASE EVENT DATE: 20180907
